FAERS Safety Report 10049177 (Version 1)
Quarter: 2014Q2

REPORT INFORMATION
  Report Type: Spontaneous
  Country: CA (occurrence: CA)
  Receive Date: 20140401
  Receipt Date: 20140401
  Transmission Date: 20141212
  Serious: Yes (Other)
  Sender: FDA-Public Use
  Company Number: CA-AMGEN-CANSP2014022068

PATIENT
  Age: 77 Year
  Sex: Female

DRUGS (1)
  1. PROLIA [Suspect]
     Indication: OSTEOPOROSIS POSTMENOPAUSAL
     Dosage: UNK
     Route: 065
     Dates: start: 20130916

REACTIONS (7)
  - Chest pain [Unknown]
  - Chest discomfort [Unknown]
  - Nasopharyngitis [Unknown]
  - Breast swelling [Unknown]
  - Sinus disorder [Unknown]
  - Increased bronchial secretion [Unknown]
  - Cough [Unknown]
